FAERS Safety Report 8537587-3 (Version None)
Quarter: 2012Q3

REPORT INFORMATION
  Report Type: 
  Country: None (occurrence: None)
  Receive Date: 20120725
  Receipt Date: 20120712
  Transmission Date: 20120928
  Serious: No
  Sender: FDA-Public Use
  Company Number: US-ASTRAZENECA-2012SE48263

PATIENT
  Sex: Male

DRUGS (4)
  1. ZANTAC [Concomitant]
  2. PREVACID [Concomitant]
  3. NEXIUM [Suspect]
     Indication: GASTROOESOPHAGEAL REFLUX DISEASE
     Route: 048
  4. PRILOSEC [Concomitant]

REACTIONS (2)
  - INTENTIONAL DRUG MISUSE [None]
  - HEARING IMPAIRED [None]
